FAERS Safety Report 8809468 (Version 2)
Quarter: 2012Q4

REPORT INFORMATION
  Report Type: 
  Country: BR (occurrence: BR)
  Receive Date: 20120926
  Receipt Date: 20121226
  Transmission Date: 20130627
  Serious: Yes (Other)
  Sender: FDA-Public Use
  Company Number: PHHY2012BR082617

PATIENT
  Sex: Female
  Weight: 72 kg

DRUGS (3)
  1. DIOVAN TRIPLE [Suspect]
     Indication: BLOOD PRESSURE
     Dosage: 1 DF (160 mg vals, 10 mg amlo, 12.5 mg hydr) daily
     Route: 048
  2. DIOVAN TRIPLE [Suspect]
     Dosage: 1 DF(160 mg vals, 05 mg amlo, 12.5 mg hydr), daily
     Route: 048
  3. DIOVAN TRIPLE [Suspect]
     Dosage: 1 DF (160 mg vals, 10 mg amlo, 12.5 mg hydr), daily
     Route: 048

REACTIONS (4)
  - Premature labour [Unknown]
  - Pregnancy with contraceptive device [Unknown]
  - Incorrect dose administered [Unknown]
  - Exposure during pregnancy [Unknown]
